FAERS Safety Report 12055823 (Version 1)
Quarter: 2016Q1

REPORT INFORMATION
  Report Type: Spontaneous
  Country: US (occurrence: US)
  Receive Date: 20160209
  Receipt Date: 20160209
  Transmission Date: 20160526
  Serious: No
  Sender: FDA-Public Use
  Company Number: US-009507513-1601USA011618

PATIENT
  Age: 47 Year
  Sex: Female

DRUGS (11)
  1. NASONEX [Suspect]
     Active Substance: MOMETASONE FUROATE
     Indication: SEASONAL ALLERGY
     Dosage: UNK, PRN
     Route: 055
  2. COZAAR [Concomitant]
     Active Substance: LOSARTAN POTASSIUM
     Route: 048
  3. XOPENEX [Concomitant]
     Active Substance: LEVALBUTEROL HYDROCHLORIDE
  4. FOLTX [Concomitant]
     Active Substance: CYANOCOBALAMIN CO-57\FOLIC ACID\PYRIDOXINE HYDROCHLORIDE
  5. AUBAGIO [Concomitant]
     Active Substance: TERIFLUNOMIDE
  6. NASONEX [Suspect]
     Active Substance: MOMETASONE FUROATE
     Dosage: NASONEX INADVERTENTLY SPRAYED IN HER EYE
     Route: 047
     Dates: start: 20160128, end: 20160128
  7. TOPOL (SODIUM MONOFLUOROPHOSPHATE) [Concomitant]
  8. SINGULAIR [Concomitant]
     Active Substance: MONTELUKAST SODIUM
     Route: 048
  9. ASPIRIN. [Concomitant]
     Active Substance: ASPIRIN
  10. DULERA [Concomitant]
     Active Substance: FORMOTEROL FUMARATE DIHYDRATE\MOMETASONE FUROATE
  11. NEURONTIN [Concomitant]
     Active Substance: GABAPENTIN

REACTIONS (5)
  - Eye pain [Recovering/Resolving]
  - Accidental exposure to product [Recovering/Resolving]
  - Ocular discomfort [Recovering/Resolving]
  - Lacrimation increased [Recovering/Resolving]
  - Eye irritation [Recovering/Resolving]

NARRATIVE: CASE EVENT DATE: 20160128
